FAERS Safety Report 10363809 (Version 3)
Quarter: 2014Q4

REPORT INFORMATION
  Report Type: Spontaneous
  Country: JP (occurrence: None)
  Receive Date: 20140801
  Receipt Date: 20141031
  Transmission Date: 20150528
  Serious: Yes (Hospitalization, Other)
  Sender: FDA-Public Use
  Company Number: 2009JP006812

PATIENT
  Age: 39 Year
  Sex: Female

DRUGS (12)
  1. TACROLIMUS CAPSULES (TACROLIMUS) [Suspect]
     Active Substance: TACROLIMUS
     Indication: LUPUS NEPHRITIS
     Route: 048
     Dates: start: 20080519, end: 20080615
  2. GLAKAY [Concomitant]
  3. MYSLEE [Concomitant]
     Active Substance: ZOLPIDEM TARTRATE
  4. TAKEPRON (LANSOPRAZOLE) [Concomitant]
     Active Substance: LANSOPRAZOLE
  5. CELECOX (CELECOXIB) [Concomitant]
     Active Substance: CELECOXIB
  6. GENTACIN (GENTAMICIN SULFATE) [Concomitant]
     Active Substance: GENTAMICIN SULFATE
  7. PREDNISOLONE (PREDNISOLONE) PER ORAL NOS [Suspect]
     Active Substance: PREDNISOLONE
     Indication: LUPUS NEPHRITIS
     Route: 048
     Dates: end: 20080615
  8. BONALON [Concomitant]
     Active Substance: ALENDRONATE SODIUM
  9. ISCOTIN  (ISONIAZID) [Concomitant]
  10. FLOMOX [Concomitant]
     Active Substance: CEFCAPENE PIVOXIL HYDROCHLORIDE HYDRATE
  11. LAC B (LACTOBACILLUS BIFIDUS, LYOPHILIZED) [Concomitant]
     Active Substance: BIFIDOBACTERIUM SPP.
  12. FERROMIA [Concomitant]
     Active Substance: FERROUS CITRATE

REACTIONS (7)
  - Purulence [None]
  - Osteonecrosis [None]
  - Condition aggravated [None]
  - Renal impairment [None]
  - Subcutaneous haematoma [None]
  - Drug level fluctuating [None]
  - Anaemia [None]

NARRATIVE: CASE EVENT DATE: 20081215
